FAERS Safety Report 8245425 (Version 3)
Quarter: 2012Q4

REPORT INFORMATION
  Report Type: 
  Country: JP (occurrence: JP)
  Receive Date: 20111115
  Receipt Date: 20121204
  Transmission Date: 20130627
  Serious: Yes (Hospitalization, Other)
  Sender: FDA-Public Use
  Company Number: PHHY2011JP099289

PATIENT
  Age: 80 Year
  Sex: Male
  Weight: 58 kg

DRUGS (8)
  1. ZOMETA [Suspect]
     Indication: METASTASES TO BONE
     Dosage: 4mg (every four weeks)
     Route: 041
     Dates: start: 20091120, end: 20100927
  2. CASODEX [Concomitant]
     Indication: PROSTATE CANCER
     Dosage: 80 mg, UNK
     Route: 048
     Dates: start: 20091008, end: 20110127
  3. ZOLADEX [Concomitant]
     Indication: PROSTATE CANCER
     Dosage: 3.6 mg, UNK
     Route: 058
     Dates: start: 20091020, end: 20100927
  4. ZOLADEX LA [Concomitant]
     Indication: PROSTATE CANCER
     Dosage: 10.8 mg, UNK
     Route: 058
     Dates: start: 20100927, end: 20120316
  5. ASPARA-CA [Concomitant]
     Indication: HYPOCALCAEMIA
     Dosage: 6 DF, UNK
     Route: 048
     Dates: start: 20100125, end: 20101025
  6. CALONAL [Concomitant]
     Indication: BACK PAIN
     Dosage: 3 DF, UNK
     Route: 048
     Dates: start: 20100329, end: 20101122
  7. CYTOTEC [Concomitant]
     Indication: PROPHYLAXIS
     Dosage: 3 DF, UNK
     Route: 048
     Dates: start: 20100329
  8. VOLTAREN - SLOW RELEASE [Concomitant]
     Indication: BACK PAIN
     Dosage: 2 DF, UNK
     Route: 048
     Dates: start: 20101122

REACTIONS (8)
  - Spondylitis [Recovering/Resolving]
  - Purulence [Recovering/Resolving]
  - Back pain [Unknown]
  - Gait disturbance [Unknown]
  - Pyrexia [Unknown]
  - Spinal column stenosis [Unknown]
  - Muscle abscess [Unknown]
  - Hypocalcaemia [Recovered/Resolved]
